FAERS Safety Report 15789610 (Version 1)
Quarter: 2019Q1

REPORT INFORMATION
  Report Type: Spontaneous
  Country: US (occurrence: US)
  Receive Date: 20190103
  Receipt Date: 20190103
  Transmission Date: 20190417
  Serious: Yes (Disabling)
  Sender: FDA-Public Use
  Company Number: None

PATIENT
  Age: 55 Year
  Sex: Female
  Weight: 65.25 kg

DRUGS (5)
  1. MULTIVITAMIN [Concomitant]
     Active Substance: VITAMINS
  2. CIPROFLOXACIN. [Suspect]
     Active Substance: CIPROFLOXACIN
  3. BABY ASPIRIN [Concomitant]
     Active Substance: ASPIRIN
  4. THYROID MEDS [Concomitant]
  5. QUINAPRIL. [Concomitant]
     Active Substance: QUINAPRIL

REACTIONS (8)
  - Insomnia [None]
  - Pain [None]
  - Fatigue [None]
  - Dyspepsia [None]
  - Tendonitis [None]
  - Dry eye [None]
  - Malaise [None]
  - Neuralgia [None]
